FAERS Safety Report 23665398 (Version 1)
Quarter: 2024Q1

REPORT INFORMATION
  Report Type: Report from Study
  Country: NL (occurrence: NL)
  Receive Date: 20240323
  Receipt Date: 20240323
  Transmission Date: 20240410
  Serious: Yes (Death)
  Sender: FDA-Public Use
  Company Number: NL-ABBVIE-5690675

PATIENT
  Age: 87 Year
  Sex: Male

DRUGS (8)
  1. CARBIDOPA\LEVODOPA [Suspect]
     Active Substance: CARBIDOPA\LEVODOPA
     Indication: Parkinson^s disease
     Dosage: REMAINS AT 24 HOURS
     Route: 050
     Dates: start: 20171214
  2. CARBIDOPA\LEVODOPA [Suspect]
     Active Substance: CARBIDOPA\LEVODOPA
     Dosage: MD: 9.2ML, CD: 4.5ML/H, ED: 1.50ML, CND: 3.5ML/H?REMAINS AT 24 HOURS
     Route: 050
     Dates: start: 20230713, end: 20231023
  3. CARBIDOPA\LEVODOPA [Suspect]
     Active Substance: CARBIDOPA\LEVODOPA
     Dosage: MD: 9.2ML, CD: 4.5ML/H, ED: 1.50ML, CND: 3.5ML/H?REMAINS AT 24 HOURS
     Route: 050
     Dates: start: 20231023, end: 20231211
  4. CARBIDOPA\LEVODOPA [Suspect]
     Active Substance: CARBIDOPA\LEVODOPA
     Dosage: MD: 9.2ML, CD: 4.5ML/H, ED: 1.50ML, ND: 0.0ML, CND: 3.5ML/H, END: 1.50ML?REMAINS AT 24 HOURS
     Route: 050
     Dates: start: 20231211, end: 20240322
  5. PREGABALIN EG [Concomitant]
     Indication: Polyneuropathy
     Route: 048
  6. TRAMADOL [Concomitant]
     Active Substance: TRAMADOL\TRAMADOL HYDROCHLORIDE
     Indication: Product used for unknown indication
  7. POLYETHYLENE GLYCOLS [Concomitant]
     Active Substance: POLYETHYLENE GLYCOLS
     Indication: Product used for unknown indication
  8. CLOZAPINE [Concomitant]
     Active Substance: CLOZAPINE
     Indication: Hallucination

REACTIONS (1)
  - Death [Fatal]

NARRATIVE: CASE EVENT DATE: 20240301
